FAERS Safety Report 4569487-8 (Version None)
Quarter: 2005Q1

REPORT INFORMATION
  Report Type: 
  Country: None (occurrence: None)
  Receive Date: 20050201
  Receipt Date: 20050114
  Transmission Date: 20050727
  Serious: Yes (Death, Hospitalization)
  Sender: FDA-Public Use
  Company Number: A03200500123

PATIENT
  Age: 85 Year
  Sex: Male
  Weight: 75 kg

DRUGS (2)
  1. ELOXATIN [Suspect]
     Indication: RECTAL CANCER
     Dosage: 60 MG/M2 1 /WEEK- INTRAVENOUS NOS
     Route: 042
     Dates: start: 20041124, end: 20041213
  2. XELODA [Suspect]
     Indication: RECTAL CANCER
     Dosage: 3000 MG  - ORAL
     Route: 048
     Dates: start: 20041129, end: 20041214

REACTIONS (6)
  - BLOOD CREATININE INCREASED [None]
  - DEHYDRATION [None]
  - DIARRHOEA [None]
  - GENERAL PHYSICAL HEALTH DETERIORATION [None]
  - RESPIRATORY ARREST [None]
  - RESPIRATORY FAILURE [None]
